FAERS Safety Report 25201801 (Version 1)
Quarter: 2025Q2

REPORT INFORMATION
  Report Type: Spontaneous
  Country: US (occurrence: US)
  Receive Date: 20250416
  Receipt Date: 20250416
  Transmission Date: 20250717
  Serious: No
  Sender: Kenvue
  Company Number: US-KENVUE-20250308191

PATIENT

DRUGS (1)
  1. ROGAINE [Suspect]
     Active Substance: MINOXIDIL
     Indication: Product used for unknown indication
     Route: 061

REACTIONS (7)
  - Suspected counterfeit product [Unknown]
  - Product odour abnormal [Unknown]
  - Application site pruritus [Unknown]
  - Application site paraesthesia [Unknown]
  - Product container issue [Unknown]
  - Product physical consistency issue [Unknown]
  - Poor quality product administered [Unknown]
